FAERS Safety Report 7361242-9 (Version None)
Quarter: 2011Q1

REPORT INFORMATION
  Report Type: 
  Country: None (occurrence: None)
  Receive Date: 20110318
  Receipt Date: 20110307
  Transmission Date: 20110831
  Serious: Yes (Other)
  Sender: FDA-Public Use
  Company Number: US-BAYER-2011-022448

PATIENT
  Sex: Female
  Weight: 91 kg

DRUGS (6)
  1. DIOVAN [Concomitant]
  2. ALEVE (CAPLET) [Suspect]
     Indication: ARTHRITIS
     Dosage: 1 DF, BID
     Route: 048
     Dates: start: 20110306, end: 20110307
  3. ANTIHYPERTENSIVES [Concomitant]
     Dosage: UNK
  4. DIURETICS [Concomitant]
     Dosage: UNK
  5. DILTIAZEM [Concomitant]
  6. POTASSIUM CHLORIDE [Concomitant]

REACTIONS (3)
  - DIZZINESS [None]
  - ASTHENIA [None]
  - SYNCOPE [None]
